FAERS Safety Report 7080320-5 (Version None)
Quarter: 2010Q4

REPORT INFORMATION
  Report Type: 
  Country: None (occurrence: None)
  Receive Date: 20101103
  Receipt Date: 20101027
  Transmission Date: 20110411
  Serious: Yes (Other)
  Sender: FDA-Public Use
  Company Number: GB-TEVA-253374ISR

PATIENT
  Age: 76 Year
  Sex: Female

DRUGS (1)
  1. RISPERIDONE [Suspect]

REACTIONS (1)
  - FLOPPY IRIS SYNDROME [None]
